FAERS Safety Report 4987025-2 (Version None)
Quarter: 2006Q2

REPORT INFORMATION
  Report Type: 
  Country: None (occurrence: None)
  Receive Date: 20060501
  Receipt Date: 20060419
  Transmission Date: 20061013
  Serious: Yes (Death)
  Sender: FDA-Public Use
  Company Number: KR-AVENTIS-200612381EU

PATIENT
  Sex: Female

DRUGS (4)
  1. LASIX [Suspect]
     Indication: HYPERTENSION
  2. SPIRONOLACTONE [Concomitant]
     Indication: DRUG USE FOR UNKNOWN INDICATION
  3. ANTIHYPERTENSIVES [Concomitant]
     Indication: HYPERTENSION
     Route: 048
  4. BRONCHODILATOR [Concomitant]
     Indication: BRONCHOSTENOSIS
     Route: 055

REACTIONS (3)
  - EMPHYSEMA [None]
  - OBSTRUCTIVE AIRWAYS DISORDER [None]
  - PHARMACEUTICAL PRODUCT COMPLAINT [None]
